FAERS Safety Report 15996515 (Version 1)
Quarter: 2019Q1

REPORT INFORMATION
  Report Type: Spontaneous
  Country: US (occurrence: US)
  Receive Date: 20190222
  Receipt Date: 20190222
  Transmission Date: 20190418
  Serious: Yes (Life-Threatening, Other)
  Sender: FDA-Public Use
  Company Number: None

PATIENT
  Age: 78 Year
  Sex: Female
  Weight: 49.5 kg

DRUGS (3)
  1. BRILINTA [Concomitant]
     Active Substance: TICAGRELOR
  2. SIMVASTATIN. [Suspect]
     Active Substance: SIMVASTATIN
     Indication: PRODUCT USED FOR UNKNOWN INDICATION
     Dosage: ?          QUANTITY:1 CAPSULE(S);?
     Route: 048
     Dates: start: 20190221, end: 20190222
  3. ASPRIN [Concomitant]
     Active Substance: ASPIRIN

REACTIONS (3)
  - Dizziness [None]
  - Lip swelling [None]
  - Feeling abnormal [None]

NARRATIVE: CASE EVENT DATE: 20190221
